FAERS Safety Report 20187102 (Version 3)
Quarter: 2022Q3

REPORT INFORMATION
  Report Type: Spontaneous
  Country: US (occurrence: US)
  Receive Date: 20211215
  Receipt Date: 20220726
  Transmission Date: 20221027
  Serious: Yes (Other)
  Sender: FDA-Public Use
  Company Number: US-drreddys-SPO/USA/21/0144592

PATIENT
  Age: 21 Year
  Sex: Female

DRUGS (2)
  1. ZENATANE [Suspect]
     Active Substance: ISOTRETINOIN
     Indication: Product used for unknown indication
     Dosage: RMA ISSUE DATE:17 MAY 2021 4:03:21 PM,15 JUNE 2021 1:52:54 PM,14 JULY 2021 1:48:49 PM,16 AUGUST 2021
     Dates: start: 20210416, end: 20211015
  2. ZENATANE [Suspect]
     Active Substance: ISOTRETINOIN
     Dosage: RMA ISSUE DATE:16 APRIL 2021 11:06:16 AM

REACTIONS (2)
  - Exposure during pregnancy [Unknown]
  - Product administration error [Unknown]
